FAERS Safety Report 14372629 (Version 1)
Quarter: 2018Q1

REPORT INFORMATION
  Report Type: Spontaneous
  Country: US (occurrence: US)
  Receive Date: 20180110
  Receipt Date: 20180110
  Transmission Date: 20180509
  Serious: Yes (Life-Threatening, Hospitalization, Other)
  Sender: FDA-Public Use
  Company Number: US-MYLANLABS-2017M1083746

PATIENT
  Age: 74 Year
  Sex: Female

DRUGS (1)
  1. ROPIVACAINE [Suspect]
     Active Substance: ROPIVACAINE
     Indication: NERVE BLOCK
     Dosage: UNK
     Route: 065

REACTIONS (6)
  - Cardiogenic shock [Recovered/Resolved]
  - Seizure [Unknown]
  - Stress cardiomyopathy [Recovered/Resolved]
  - Unresponsive to stimuli [Unknown]
  - Apnoea [Unknown]
  - Cardiac arrest [Recovered/Resolved]
